FAERS Safety Report 9464378 (Version 1)
Quarter: 2013Q3

REPORT INFORMATION
  Report Type: Spontaneous
  Country: IT (occurrence: IT)
  Receive Date: 20130819
  Receipt Date: 20130819
  Transmission Date: 20140515
  Serious: Yes (Other)
  Sender: FDA-Public Use
  Company Number: IT-TEVA-425817ISR

PATIENT
  Age: 62 Year
  Sex: Female
  Weight: 80 kg

DRUGS (3)
  1. EPIRUBICIN HYDROCHLORIDE [Suspect]
     Indication: INVASIVE DUCTAL BREAST CARCINOMA
     Route: 042
     Dates: start: 20130409
  2. FLUOROURACILE [Concomitant]
     Indication: INVASIVE DUCTAL BREAST CARCINOMA
     Dates: start: 20130409, end: 20130729
  3. CICLOFOSFAMIDE [Concomitant]
     Indication: INVASIVE DUCTAL BREAST CARCINOMA
     Dates: start: 20130409, end: 20130729

REACTIONS (1)
  - Hyperbilirubinaemia [Recovered/Resolved]
